FAERS Safety Report 5144798-6 (Version None)
Quarter: 2006Q4

REPORT INFORMATION
  Report Type: 
  Country: None (occurrence: None)
  Receive Date: 20061107
  Receipt Date: 20060517
  Transmission Date: 20070319
  Serious: Yes (Other)
  Sender: FDA-Public Use
  Company Number: PHHO2006BR08044

PATIENT
  Age: 56 Year
  Sex: Female
  Weight: 66 kg

DRUGS (5)
  1. ZELMAC / HTF 919A [Suspect]
     Indication: IRRITABLE BOWEL SYNDROME
     Dosage: 6 MG, QD
     Route: 048
     Dates: start: 20051022, end: 20051028
  2. ZELMAC / HTF 919A [Suspect]
     Dosage: 6 MG, BID
     Route: 048
     Dates: start: 20051029, end: 20060522
  3. ZELMAC / HTF 919A [Suspect]
     Dosage: 6 MG, QD
     Route: 048
     Dates: start: 20060523
  4. LIPITOR [Concomitant]
     Indication: BLOOD CHOLESTEROL INCREASED
  5. RIVOTRIL [Concomitant]
     Indication: SLEEP DISORDER

REACTIONS (5)
  - COLONIC POLYP [None]
  - CONSTIPATION [None]
  - MELANOSIS COLI [None]
  - POLYPECTOMY [None]
  - RECTAL POLYP [None]
